FAERS Safety Report 8308891-9 (Version None)
Quarter: 2012Q2

REPORT INFORMATION
  Report Type: 
  Country: None (occurrence: None)
  Receive Date: 20120421
  Receipt Date: 20120421
  Transmission Date: 20120825
  Serious: Yes (Hospitalization)
  Sender: FDA-Public Use
  Company Number: None

PATIENT
  Sex: Male
  Weight: 103.6 kg

DRUGS (2)
  1. FLUDARABINE PHOSPHATE [Suspect]
     Dosage: 280 MG
     Dates: end: 20120406
  2. RITUXIMAB (MOAB C2B8 ANTI CD20, CHIMERIC) [Suspect]
     Dosage: 1672 MG
     Dates: end: 20120406

REACTIONS (1)
  - SEPSIS [None]
